FAERS Safety Report 7988141-3 (Version None)
Quarter: 2011Q4

REPORT INFORMATION
  Report Type: 
  Country: None (occurrence: None)
  Receive Date: 20111216
  Receipt Date: 20110617
  Transmission Date: 20120403
  Serious: No
  Sender: FDA-Public Use
  Company Number: US-BRISTOL-MYERS SQUIBB COMPANY-15841679

PATIENT
  Age: 52 Year
  Sex: Male

DRUGS (5)
  1. PROZAC [Concomitant]
  2. CYMBALTA [Concomitant]
  3. SIMVASTATIN [Concomitant]
  4. ABILIFY [Suspect]
     Indication: DEPRESSION
     Dosage: FOR MONTHS
  5. BLOOD PRESSURE MEDICATION [Concomitant]

REACTIONS (1)
  - DYSKINESIA [None]
